FAERS Safety Report 4865852-X (Version None)
Quarter: 2005Q4

REPORT INFORMATION
  Report Type: 
  Country: None (occurrence: None)
  Receive Date: 20051220
  Receipt Date: 20051207
  Transmission Date: 20060501
  Serious: Yes (Hospitalization, Other)
  Sender: FDA-Public Use
  Company Number: 2004094997

PATIENT
  Age: 39 Year
  Sex: Female

DRUGS (8)
  1. AZITHROMYCIN [Suspect]
     Indication: MYCOBACTERIUM AVIUM COMPLEX INFECTION
     Dosage: 1200 MG (1200 MG, 1 IN 1 WK), ORAL
     Route: 048
     Dates: start: 20030603
  2. COMBIVIR [Suspect]
     Indication: HIV INFECTION
     Dosage: ORAL
     Route: 048
     Dates: start: 20041217, end: 20050311
  3. REYATAZ [Suspect]
     Indication: HIV INFECTION
     Dosage: 400 MG (UNKNOWN) , ORAL
     Route: 048
     Dates: start: 20041217
  4. VALCYTE [Suspect]
     Indication: CYTOMEGALOVIRUS CHORIORETINITIS
     Dosage: 900 MG (900 MG, 1 IN 1 D), ORAL
     Route: 048
  5. COTRIM [Concomitant]
  6. DIFLUCAN (FLUCONAZOLE) [Concomitant]
  7. EPIVIR [Concomitant]
  8. ZERIT [Concomitant]

REACTIONS (3)
  - ANAEMIA [None]
  - BONE MARROW FAILURE [None]
  - CYTOMEGALOVIRUS CHORIORETINITIS [None]
